FAERS Safety Report 4922406-4 (Version None)
Quarter: 2006Q1

REPORT INFORMATION
  Report Type: 
  Country: None (occurrence: None)
  Receive Date: 20060224
  Receipt Date: 20051025
  Transmission Date: 20060701
  Serious: Yes (Hospitalization)
  Sender: FDA-Public Use
  Company Number: US-MERCK-0510USA09231

PATIENT
  Age: 53 Year
  Sex: Female
  Weight: 72 kg

DRUGS (7)
  1. VIOXX [Suspect]
     Indication: OSTEOARTHRITIS
     Route: 048
     Dates: start: 20020602, end: 20030127
  2. ACCUPRIL [Concomitant]
     Indication: HYPERTENSION
     Route: 065
     Dates: start: 19890101, end: 20040401
  3. ATENOLOL [Concomitant]
     Indication: HYPERTENSION
     Route: 065
     Dates: start: 19900101
  4. ATENOLOL [Concomitant]
     Indication: CARDIAC DISORDER
     Route: 065
     Dates: start: 19900101
  5. FUROSEMIDE [Concomitant]
     Indication: OEDEMA PERIPHERAL
     Route: 065
     Dates: start: 20000201, end: 20020101
  6. IBUPROFEN [Concomitant]
     Indication: PAIN
     Route: 065
     Dates: start: 20010101, end: 20020101
  7. TYLENOL (CAPLET) [Concomitant]
     Indication: ARTHRITIS
     Route: 065
     Dates: start: 20000101, end: 20030101

REACTIONS (13)
  - ABDOMINAL DISTENSION [None]
  - ANXIETY DISORDER [None]
  - GASTROINTESTINAL DISORDER [None]
  - GASTROOESOPHAGEAL REFLUX DISEASE [None]
  - HYPERTENSION [None]
  - HYPOKALAEMIA [None]
  - INTERVERTEBRAL DISC PROTRUSION [None]
  - LOSS OF CONSCIOUSNESS [None]
  - MYOCARDIAL INFARCTION [None]
  - RENAL ARTERY STENOSIS [None]
  - SYNCOPE [None]
  - VENTRICULAR HYPERTROPHY [None]
  - VISION BLURRED [None]
